FAERS Safety Report 4342638-6 (Version None)
Quarter: 2004Q2

REPORT INFORMATION
  Report Type: 
  Country: None (occurrence: None)
  Receive Date: 20040421
  Receipt Date: 20040409
  Transmission Date: 20050107
  Serious: Yes (Hospitalization)
  Sender: FDA-Public Use
  Company Number: 200411528FR

PATIENT
  Age: 31 Year
  Sex: Female

DRUGS (1)
  1. FLAGYL [Suspect]
     Route: 042
     Dates: start: 20031121, end: 20031124

REACTIONS (2)
  - BLOOD AMYLASE INCREASED [None]
  - LIPASE INCREASED [None]
